FAERS Safety Report 4410801-1 (Version None)
Quarter: 2004Q3

REPORT INFORMATION
  Report Type: 
  Country: None (occurrence: None)
  Receive Date: 20040729
  Receipt Date: 20040722
  Transmission Date: 20050211
  Serious: Yes (Hospitalization)
  Sender: FDA-Public Use
  Company Number: US-MERCK-0407USA01845

PATIENT

DRUGS (1)
  1. ZOCOR [Suspect]
     Route: 048
     Dates: end: 20040601

REACTIONS (2)
  - LOSS OF CONSCIOUSNESS [None]
  - RHABDOMYOLYSIS [None]
